FAERS Safety Report 9872598 (Version 2)
Quarter: 2014Q1

REPORT INFORMATION
  Report Type: Other
  Country: US (occurrence: US)
  Receive Date: 20140206
  Receipt Date: 20140312
  Transmission Date: 20141002
  Serious: Yes (Death, Disabling, Other)
  Sender: FDA-Public Use
  Company Number: US-ACORDA-ACO_100777_2013

PATIENT
  Sex: Male

DRUGS (2)
  1. AMPYRA [Suspect]
     Indication: MULTIPLE SCLEROSIS
     Dosage: 10 MG EVERY MORNING FOR ONE WEEK
     Route: 048
     Dates: start: 20131104, end: 2013
  2. AMPYRA [Suspect]
     Dosage: 10 MG, BID
     Route: 048
     Dates: start: 2013

REACTIONS (5)
  - Death [Fatal]
  - Cervical spinal stenosis [Unknown]
  - Myelopathy [Unknown]
  - Chronic obstructive pulmonary disease [None]
  - Gait disturbance [Unknown]
